FAERS Safety Report 10675450 (Version 1)
Quarter: 2014Q4

REPORT INFORMATION
  Report Type: Spontaneous
  Country: GB (occurrence: GB)
  Receive Date: 20141224
  Receipt Date: 20141224
  Transmission Date: 20150529
  Serious: Yes (Other)
  Sender: FDA-Public Use
  Company Number: GB-ALLERGAN-1425986US

PATIENT
  Sex: Male

DRUGS (6)
  1. ALPHAGAN 0.2% W/V (2 MG/ML) EYE DROPS SOLUTION [Suspect]
     Active Substance: BRIMONIDINE TARTRATE
     Indication: PRODUCT USED FOR UNKNOWN INDICATION
     Dosage: 2 GTT, UNK
     Route: 047
  2. ACULAR [Concomitant]
     Active Substance: KETOROLAC TROMETHAMINE
     Dosage: 1 GTT, TID
     Route: 047
  3. COSOPT [Concomitant]
     Active Substance: DORZOLAMIDE HYDROCHLORIDE\TIMOLOL MALEATE
     Indication: PRODUCT USED FOR UNKNOWN INDICATION
     Dosage: 2 GTT, BID
     Route: 047
  4. ALPHAGAN 0.2% W/V (2 MG/ML) EYE DROPS SOLUTION [Suspect]
     Active Substance: BRIMONIDINE TARTRATE
     Dosage: 1 GTT, BID
  5. LUMIGAN [Concomitant]
     Active Substance: BIMATOPROST
     Dosage: 2 GTT, UNK
     Route: 047
  6. GANFORT [Concomitant]
     Active Substance: BIMATOPROST\TIMOLOL
     Dosage: 2 GTT, UNK
     Route: 047

REACTIONS (8)
  - Intraocular lens implant [Unknown]
  - Reaction to preservatives [Not Recovered/Not Resolved]
  - Visual acuity reduced [Unknown]
  - Retinal vein occlusion [Unknown]
  - Hypertension [Not Recovered/Not Resolved]
  - Macular oedema [Unknown]
  - Heart rate decreased [Not Recovered/Not Resolved]
  - Drug ineffective [Unknown]
